FAERS Safety Report 17076807 (Version 5)
Quarter: 2020Q3

REPORT INFORMATION
  Report Type: Report from Study
  Country: TW (occurrence: TW)
  Receive Date: 20191126
  Receipt Date: 20200213
  Transmission Date: 20201104
  Serious: Yes (Life-Threatening, Hospitalization)
  Sender: FDA-Public Use
  Company Number: TW-ALEXION PHARMACEUTICALS INC.-A201917431

PATIENT
  Age: 67 Year
  Sex: Female
  Weight: 45 kg

DRUGS (157)
  1. VANCOMYCIN [Concomitant]
     Active Substance: VANCOMYCIN
     Indication: PNEUMONIA
     Dosage: 1000 MG, TIW
     Route: 042
     Dates: start: 20191019, end: 20191021
  2. MIDODRINE [Concomitant]
     Active Substance: MIDODRINE
     Dosage: 20 MG, QD
     Route: 048
     Dates: start: 20191116, end: 20191116
  3. CEFUROXIME. [Concomitant]
     Active Substance: CEFUROXIME
     Indication: CHOLECYSTITIS
     Dosage: 500 MG, TIW
     Route: 042
     Dates: start: 20191025, end: 20191031
  4. SENNOSIDES A+B [Concomitant]
     Active Substance: SENNOSIDES A AND B
     Dosage: 40 MG, QD
     Route: 048
     Dates: start: 20191202, end: 20191202
  5. GABAPENTIN. [Concomitant]
     Active Substance: GABAPENTIN
     Indication: DERMATITIS BULLOUS
     Dosage: 300 MG, SINGLE
     Route: 048
     Dates: start: 20191106, end: 20191106
  6. RAVULIZUMAB. [Suspect]
     Active Substance: RAVULIZUMAB
     Dosage: 3000 MG, UNK
     Route: 042
     Dates: start: 20190924
  7. CALCIUM ACETATE. [Concomitant]
     Active Substance: CALCIUM ACETATE
     Dosage: 1334 ML, TID
     Route: 048
     Dates: start: 20191105, end: 20191211
  8. FEXOFENADINE [Concomitant]
     Active Substance: FEXOFENADINE HYDROCHLORIDE
     Indication: PRURITUS
     Dosage: 60 MG, QD
     Route: 048
     Dates: start: 20190403, end: 20191016
  9. COMBIVENT [Concomitant]
     Active Substance: ALBUTEROL SULFATE\IPRATROPIUM BROMIDE
     Dosage: 2.5 ML, TID
     Route: 055
     Dates: start: 20191030, end: 20191106
  10. ISOSORBIDE MONONITRATE. [Concomitant]
     Active Substance: ISOSORBIDE MONONITRATE
     Dosage: 60 MG, QD
     Route: 048
     Dates: start: 20191105, end: 20191119
  11. ZOPICLONE [Concomitant]
     Active Substance: ZOPICLONE
     Indication: INSOMNIA
     Dosage: 15 MG, QD
     Route: 048
     Dates: start: 20190813
  12. CALCIUM POLYSTYRENE SULFONATE [Concomitant]
     Active Substance: CALCIUM POLYSTYRENE SULFONATE
     Dosage: 10 G, TID
     Route: 048
     Dates: start: 20191116, end: 20191119
  13. DOXAZOSIN [Concomitant]
     Active Substance: DOXAZOSIN MESYLATE
     Dosage: 4 MG, QD
     Route: 048
     Dates: start: 20191029, end: 20191107
  14. DOXAZOSIN [Concomitant]
     Active Substance: DOXAZOSIN MESYLATE
     Dosage: 2 MG, UNK
     Route: 065
     Dates: start: 20191109, end: 20191110
  15. BROWN MIXTURE                      /01682301/ [Concomitant]
     Dosage: 10 ML, TID
     Route: 048
     Dates: start: 20191020, end: 20191024
  16. BROWN MIXTURE                      /01682301/ [Concomitant]
     Dosage: 5 ML, TID
     Route: 048
     Dates: start: 20191105, end: 20191112
  17. ACETYLCYSTEINE. [Concomitant]
     Active Substance: ACETYLCYSTEINE
     Dosage: 200 MG, TID
     Route: 048
     Dates: start: 20191015, end: 20191018
  18. DEXTROMETHORPHAN [Concomitant]
     Active Substance: DEXTROMETHORPHAN
     Indication: COUGH
     Dosage: 60 MG, QD
     Route: 048
     Dates: start: 20191021, end: 20191029
  19. FLURBIPROFEN. [Concomitant]
     Active Substance: FLURBIPROFEN
     Indication: ARTHRALGIA
     Dosage: 1 UNK, QD
     Route: 061
     Dates: start: 20190924, end: 20191022
  20. VANCOMYCIN [Concomitant]
     Active Substance: VANCOMYCIN
     Dosage: 500 MG, TIW
     Route: 042
     Dates: start: 20191110, end: 20191113
  21. NITROGLYCERIN. [Concomitant]
     Active Substance: NITROGLYCERIN
     Indication: HYPERTENSION
     Dosage: 25 MG, SINGLE
     Route: 042
     Dates: start: 20191019, end: 20191019
  22. DIMETHICONE. [Concomitant]
     Active Substance: DIMETHICONE
     Indication: GASTRIC ULCER
     Dosage: 40 MG, QID
     Route: 048
     Dates: start: 20191020, end: 20191020
  23. SENNOSIDES A+B [Concomitant]
     Active Substance: SENNOSIDES A AND B
     Dosage: 20 MG, QD
     Route: 048
     Dates: start: 20191203, end: 20191211
  24. TRANEXAMIC [Concomitant]
     Active Substance: TRANEXAMIC ACID
     Indication: GASTRIC HAEMORRHAGE
     Dosage: 250 MG, SINGLE
     Route: 042
     Dates: start: 20191108, end: 20191108
  25. RISPERIDONE. [Concomitant]
     Active Substance: RISPERIDONE
     Indication: DELIRIUM
     Dosage: 1 MG, QD
     Route: 048
     Dates: start: 20191115, end: 20191120
  26. RISPERIDONE. [Concomitant]
     Active Substance: RISPERIDONE
     Dosage: 0.5 MG, BID
     Route: 048
     Dates: start: 20191121, end: 20191121
  27. INSULIN REGULAR                    /01223201/ [Concomitant]
     Active Substance: INSULIN BEEF
     Indication: END STAGE RENAL DISEASE
     Dosage: 8 IU, SINGLE
     Route: 058
     Dates: start: 20191116, end: 20191116
  28. FEBUXOSTAT. [Concomitant]
     Active Substance: FEBUXOSTAT
     Dosage: 40 MG, QD
     Route: 048
     Dates: start: 20191019, end: 20191019
  29. CLOPIDOGREL [Concomitant]
     Active Substance: CLOPIDOGREL BISULFATE
     Indication: MYOCARDIAL ISCHAEMIA
     Dosage: 75 MG, QD
     Route: 048
     Dates: start: 20190709
  30. CLOPIDOGREL [Concomitant]
     Active Substance: CLOPIDOGREL BISULFATE
     Dosage: 75 MG, QD
     Route: 048
     Dates: start: 20191019, end: 20191019
  31. ATORVASTATIN [Concomitant]
     Active Substance: ATORVASTATIN
     Dosage: 10 MG, QD
     Route: 048
     Dates: start: 20191105
  32. CALCIUM POLYSTYRENE SULFONATE [Concomitant]
     Active Substance: CALCIUM POLYSTYRENE SULFONATE
     Dosage: 5 G, QD
     Route: 048
     Dates: start: 20191126, end: 20191201
  33. THEOPHYLLINE [Concomitant]
     Active Substance: THEOPHYLLINE ANHYDROUS
     Dosage: 200 MG, UNK
     Route: 042
     Dates: start: 20191108
  34. HYDROXYCHLOROQUINE [Concomitant]
     Active Substance: HYDROXYCHLOROQUINE
     Dosage: 200 MG, QD
     Route: 048
     Dates: start: 20191108, end: 20191109
  35. ACETYLCYSTEINE. [Concomitant]
     Active Substance: ACETYLCYSTEINE
     Dosage: 600 MG, TID
     Route: 048
     Dates: start: 20191019, end: 20191019
  36. ACETAMINOPHEN. [Concomitant]
     Active Substance: ACETAMINOPHEN
     Dosage: 500 MG, TID
     Route: 048
     Dates: start: 20191105, end: 20191106
  37. VANCOMYCIN [Concomitant]
     Active Substance: VANCOMYCIN
     Dosage: 1000 MG, TIW
     Route: 042
     Dates: start: 20191108, end: 20191110
  38. SOD BICARBONATE [Concomitant]
     Indication: PNEUMONIA
     Dosage: 20 ML, SINGLE
     Route: 042
     Dates: start: 20191107, end: 20191107
  39. TRANSAMIN [Concomitant]
     Active Substance: TRANEXAMIC ACID
     Dosage: 250 MG, BID
     Route: 048
     Dates: start: 20191109, end: 20191111
  40. RISPERIDONE. [Concomitant]
     Active Substance: RISPERIDONE
     Dosage: 0.5 MG, QD
     Route: 048
     Dates: start: 20191122, end: 20191125
  41. CALCIUM GLUCONATE. [Concomitant]
     Active Substance: CALCIUM GLUCONATE
     Indication: SUPPLEMENTATION THERAPY
     Dosage: 10 ML, QD
     Route: 042
     Dates: start: 20191116, end: 20191117
  42. INSULIN REGULAR                    /01223201/ [Concomitant]
     Active Substance: INSULIN BEEF
     Dosage: 4 IU, SINGLE
     Route: 042
     Dates: start: 20191117, end: 20191117
  43. BENIDIPINE [Concomitant]
     Active Substance: BENIDIPINE
     Dosage: 10 MG, QD
     Route: 048
     Dates: start: 20191112, end: 20191112
  44. LABETALOL [Concomitant]
     Active Substance: LABETALOL\LABETALOL HYDROCHLORIDE
     Dosage: 5 MG, SINGLE
     Route: 042
     Dates: start: 20191107, end: 20191107
  45. LABETALOL [Concomitant]
     Active Substance: LABETALOL\LABETALOL HYDROCHLORIDE
     Dosage: 2.5 MG, Q6H
     Route: 042
     Dates: start: 20191118, end: 20191122
  46. FEXOFENADINE [Concomitant]
     Active Substance: FEXOFENADINE HYDROCHLORIDE
     Dosage: 120 MG, QD
     Route: 048
     Dates: start: 20191130, end: 20191130
  47. FEXOFENADINE [Concomitant]
     Active Substance: FEXOFENADINE HYDROCHLORIDE
     Dosage: 60 MG, QD
     Route: 048
     Dates: start: 20191201, end: 20191211
  48. EPOETIN BETA [Concomitant]
     Active Substance: ERYTHROPOIETIN
     Indication: END STAGE RENAL DISEASE
     Dosage: 2000 IU, TIW PRN
     Route: 042
     Dates: start: 20190624
  49. CALCIUM POLYSTYRENE SULFONATE [Concomitant]
     Active Substance: CALCIUM POLYSTYRENE SULFONATE
     Indication: END STAGE RENAL DISEASE
     Dosage: 5 G, QD
     Route: 048
     Dates: start: 20190903, end: 20191115
  50. CALCIUM POLYSTYRENE SULFONATE [Concomitant]
     Active Substance: CALCIUM POLYSTYRENE SULFONATE
     Dosage: 5 G, QD
     Route: 048
     Dates: start: 20191120, end: 20191121
  51. PHYTOMENADIONE [Concomitant]
     Active Substance: PHYTONADIONE
     Indication: END STAGE RENAL DISEASE
     Dosage: 10 MG, QD
     Route: 042
     Dates: start: 20191024, end: 20191028
  52. CEVIMELINE. [Concomitant]
     Active Substance: CEVIMELINE
     Dosage: 30 UNK, UNK
     Route: 048
     Dates: start: 20191108, end: 20191109
  53. HYDROXYCHLOROQUINE [Concomitant]
     Active Substance: HYDROXYCHLOROQUINE
     Dosage: 200 MG, QD
     Route: 048
     Dates: start: 20191109, end: 20191123
  54. DESMOPRESSIN ACETATE. [Concomitant]
     Active Substance: DESMOPRESSIN ACETATE
     Indication: END STAGE RENAL DISEASE
     Dosage: 12 ?G, SINGLE
     Route: 042
     Dates: start: 20191019, end: 20191019
  55. BROWN MIXTURE                      /01682301/ [Concomitant]
     Dosage: 10 ML, BID
     Route: 048
     Dates: start: 20191025, end: 20191025
  56. ACETYLCYSTEINE. [Concomitant]
     Active Substance: ACETYLCYSTEINE
     Dosage: 200 MG, TID
     Route: 048
     Dates: start: 20191109, end: 20191110
  57. ACETAMINOPHEN. [Concomitant]
     Active Substance: ACETAMINOPHEN
     Dosage: 500 MG, Q6H (PRN)
     Route: 048
     Dates: start: 20191108, end: 20191119
  58. MIDODRINE [Concomitant]
     Active Substance: MIDODRINE
     Dosage: 10 MG, SINGLE
     Route: 048
     Dates: start: 20191125, end: 20191125
  59. CEFUROXIME. [Concomitant]
     Active Substance: CEFUROXIME
     Dosage: 500 MG, TIW
     Route: 048
     Dates: start: 20191031, end: 20191106
  60. PROCHLORPERAZINE. [Concomitant]
     Active Substance: PROCHLORPERAZINE
     Indication: HYPERTENSION
  61. MECOBALAMIN [Concomitant]
     Active Substance: METHYLCOBALAMIN
     Dosage: 500 ?G, TID
     Route: 048
     Dates: start: 20191108
  62. FEBUXOSTAT. [Concomitant]
     Active Substance: FEBUXOSTAT
     Indication: ARTHRALGIA
     Dosage: 40 MG, QD
     Route: 048
     Dates: start: 20190618
  63. ULTRACET [Concomitant]
     Active Substance: ACETAMINOPHEN\TRAMADOL HYDROCHLORIDE
     Indication: CHOLECYSTITIS
     Dosage: 1 UNK, TID
     Route: 048
     Dates: start: 20191021, end: 20191021
  64. CLONIDINE. [Concomitant]
     Active Substance: CLONIDINE
     Indication: HYPERTENSION
     Dosage: 75 ?G, TID
     Route: 048
     Dates: start: 20190723
  65. THEOPHYLLINE [Concomitant]
     Active Substance: THEOPHYLLINE ANHYDROUS
     Indication: COUGH
     Dosage: 200 MG, QD
     Route: 048
     Dates: start: 20190903, end: 20191119
  66. HYDRALAZINE [Concomitant]
     Active Substance: HYDRALAZINE HYDROCHLORIDE
     Dosage: 25 UNK, UNK
     Route: 048
     Dates: start: 20191108
  67. DOXAZOSIN [Concomitant]
     Active Substance: DOXAZOSIN MESYLATE
     Dosage: 2 MG, BID
     Route: 048
     Dates: start: 20191113, end: 20191211
  68. MEDICON A [Concomitant]
     Active Substance: DEXTROMETHORPHAN HYDROBROMIDE\LYSOZYME HYDROCHLORIDE\POTASSIUM CRESOLSULFONATE
     Indication: COUGH
     Dosage: 1 UNK, TID
     Route: 048
     Dates: start: 20190924, end: 20191021
  69. ACETYLCYSTEINE. [Concomitant]
     Active Substance: ACETYLCYSTEINE
     Dosage: 200 MG, TID
     Route: 048
     Dates: start: 20191019, end: 20191019
  70. ACETYLCYSTEINE. [Concomitant]
     Active Substance: ACETYLCYSTEINE
     Dosage: 600 MG, BID
     Route: 048
     Dates: start: 20191107, end: 20191216
  71. ACETYLCYSTEINE. [Concomitant]
     Active Substance: ACETYLCYSTEINE
     Dosage: 600 MG, BID
     Route: 048
     Dates: start: 20191109, end: 20191110
  72. ACETAMINOPHEN. [Concomitant]
     Active Substance: ACETAMINOPHEN
     Dosage: 500 MG, QID (PRN)
     Route: 048
     Dates: start: 20191107, end: 20191107
  73. ACETAMINOPHEN. [Concomitant]
     Active Substance: ACETAMINOPHEN
     Dosage: 500 MG, QID
     Route: 048
     Dates: start: 20191120, end: 20191121
  74. CODEINE PHOSPHATE [Concomitant]
     Active Substance: CODEINE PHOSPHATE
     Indication: COUGH
     Dosage: 60 MG, Q6H PRN
     Route: 048
     Dates: start: 20191105, end: 20191108
  75. VANCOMYCIN [Concomitant]
     Active Substance: VANCOMYCIN
     Dosage: 1000 MG, TIW
     Route: 042
     Dates: start: 20191110, end: 20191112
  76. MIDODRINE [Concomitant]
     Active Substance: MIDODRINE
     Indication: END STAGE RENAL DISEASE
     Dosage: 10 MG, SINGLE
     Route: 048
     Dates: start: 20191019, end: 20191019
  77. MIDODRINE [Concomitant]
     Active Substance: MIDODRINE
     Dosage: 20 MG, TIW
     Route: 048
     Dates: start: 20191023, end: 20191031
  78. SENNOSIDES A+B [Concomitant]
     Active Substance: SENNOSIDES A AND B
     Indication: PROPHYLAXIS
     Dosage: 40 MG, QD
     Route: 048
     Dates: start: 20191030, end: 20191031
  79. RAVULIZUMAB. [Suspect]
     Active Substance: RAVULIZUMAB
     Indication: ATYPICAL HAEMOLYTIC URAEMIC SYNDROME
     Dosage: 2400 MG, UNK
     Route: 042
     Dates: start: 20171103
  80. BENIDIPINE [Concomitant]
     Active Substance: BENIDIPINE
     Dosage: 4 MG, Q12H
     Route: 048
     Dates: start: 20191108
  81. MECOBALAMIN [Concomitant]
     Active Substance: METHYLCOBALAMIN
     Indication: END STAGE RENAL DISEASE
     Dosage: 500 ?G, TID
     Route: 048
     Dates: start: 20190515, end: 20191211
  82. ATORVASTATIN [Concomitant]
     Active Substance: ATORVASTATIN
     Dosage: 30 UNK, UNK
     Route: 048
     Dates: start: 20191108, end: 20191109
  83. ISOSORBIDE MONONITRATE. [Concomitant]
     Active Substance: ISOSORBIDE MONONITRATE
     Indication: MYOCARDIAL ISCHAEMIA
     Dosage: 60 MG, UNK
     Route: 048
     Dates: start: 20190709
  84. CLONIDINE. [Concomitant]
     Active Substance: CLONIDINE
     Dosage: 75 ?G, TID
     Route: 048
     Dates: start: 20191127, end: 20191211
  85. ZOPICLONE [Concomitant]
     Active Substance: ZOPICLONE
     Dosage: 15 MG, QD
     Route: 048
     Dates: start: 20191107, end: 20191107
  86. ZOPICLONE [Concomitant]
     Active Substance: ZOPICLONE
     Dosage: 7.5 MG, QD
     Route: 048
     Dates: start: 20191126, end: 20191211
  87. PANTOPRAZOLE [Concomitant]
     Active Substance: PANTOPRAZOLE
     Indication: GASTRIC ULCER
     Dosage: 40 MG, QD
     Route: 048
     Dates: start: 20190903
  88. HYDRALAZINE [Concomitant]
     Active Substance: HYDRALAZINE HYDROCHLORIDE
     Indication: HYPERTENSION
     Dosage: 25 MG, TID
     Route: 048
     Dates: start: 20190903, end: 20191119
  89. DOXAZOSIN [Concomitant]
     Active Substance: DOXAZOSIN MESYLATE
     Indication: HYPERTENSION
     Dosage: 4 MG, BID
     Route: 048
     Dates: start: 20190903
  90. DOXAZOSIN [Concomitant]
     Active Substance: DOXAZOSIN MESYLATE
     Dosage: 2 MG, Q12H
     Route: 048
     Dates: start: 20191113, end: 20191127
  91. HYDROXYCHLOROQUINE [Concomitant]
     Active Substance: HYDROXYCHLOROQUINE
     Indication: SJOGREN^S SYNDROME
     Dosage: 200 MG, QD
     Route: 048
     Dates: start: 20190924
  92. BROWN MIXTURE                      /01682301/ [Concomitant]
     Indication: COUGH
     Dosage: 5 ML, TID
     Route: 048
     Dates: start: 20190924, end: 20191019
  93. ACETYLCYSTEINE. [Concomitant]
     Active Substance: ACETYLCYSTEINE
     Dosage: 200 MG, TID
     Route: 048
     Dates: start: 20191020, end: 20191105
  94. ACETAMINOPHEN. [Concomitant]
     Active Substance: ACETAMINOPHEN
     Indication: PNEUMONIA
     Dosage: 500 UNK, UNK
     Route: 048
     Dates: start: 20191105, end: 20191108
  95. ALBUMIN [Concomitant]
     Active Substance: ALBUMIN HUMAN
     Indication: PROPHYLAXIS
     Dosage: 50 ML, PRN
     Route: 042
     Dates: start: 20191015, end: 20191015
  96. STROCAIN                           /00130301/ [Concomitant]
     Indication: GASTRIC ULCER
     Dosage: 1 TABLET, QID
     Route: 048
     Dates: start: 20191020, end: 20191020
  97. SENNOSIDES A+B [Concomitant]
     Active Substance: SENNOSIDES A AND B
     Dosage: 20 MG, QD
     Route: 048
     Dates: start: 20191125, end: 20191127
  98. PROCHLORPERAZINE. [Concomitant]
     Active Substance: PROCHLORPERAZINE
     Indication: NAUSEA
     Dosage: 5 MG, SINGLE
     Route: 030
     Dates: start: 20191106, end: 20191106
  99. BENIDIPINE [Concomitant]
     Active Substance: BENIDIPINE
     Indication: HYPERTENSION
     Dosage: 4 MG, BID
     Route: 048
     Dates: start: 20190320, end: 20191111
  100. BENIDIPINE [Concomitant]
     Active Substance: BENIDIPINE
     Dosage: 4 MG, UNK
     Route: 048
     Dates: start: 20191112, end: 20191113
  101. MOMETASONE [Concomitant]
     Active Substance: MOMETASONE
     Indication: DERMATITIS BULLOUS
     Dosage: 50 ?G, QD
     Route: 045
     Dates: start: 20191030, end: 20191106
  102. ATORVASTATIN [Concomitant]
     Active Substance: ATORVASTATIN
     Dosage: 10 MG, UNK
     Route: 048
     Dates: start: 20191109, end: 20191123
  103. ISOSORBIDE MONONITRATE. [Concomitant]
     Active Substance: ISOSORBIDE MONONITRATE
     Dosage: 60 MG, QD
     Route: 048
     Dates: start: 20191019, end: 20191019
  104. DOXAZOSIN [Concomitant]
     Active Substance: DOXAZOSIN MESYLATE
     Dosage: 2 MG, QD
     Route: 048
     Dates: start: 20191108, end: 20191112
  105. DESMOPRESSIN ACETATE. [Concomitant]
     Active Substance: DESMOPRESSIN ACETATE
     Dosage: 12 ?G, UNK
     Route: 058
     Dates: start: 20191113, end: 20191113
  106. DESMOPRESSIN ACETATE. [Concomitant]
     Active Substance: DESMOPRESSIN ACETATE
     Dosage: 4 ?G, UNK
     Route: 042
     Dates: start: 20191113, end: 20191114
  107. DESMOPRESSIN ACETATE. [Concomitant]
     Active Substance: DESMOPRESSIN ACETATE
     Dosage: 12 ?G, UNK
     Route: 042
     Dates: start: 20191116, end: 20191116
  108. ACETYLCYSTEINE. [Concomitant]
     Active Substance: ACETYLCYSTEINE
     Dosage: 200 MG, TID
     Route: 048
     Dates: start: 20190924, end: 20191015
  109. ACETAMINOPHEN. [Concomitant]
     Active Substance: ACETAMINOPHEN
     Indication: DERMATITIS BULLOUS
     Dosage: 500 MG, Q6H (PRN)
     Route: 048
     Dates: start: 20190924, end: 20191104
  110. ACETAMINOPHEN. [Concomitant]
     Active Substance: ACETAMINOPHEN
     Dosage: 500 MG, Q6H
     Route: 048
     Dates: start: 20191108, end: 20191109
  111. VANCOMYCIN [Concomitant]
     Active Substance: VANCOMYCIN
     Dosage: 1000 MG, TIW
     Route: 042
     Dates: start: 20191112, end: 20191113
  112. ALBUMIN [Concomitant]
     Active Substance: ALBUMIN HUMAN
     Dosage: 50 ML, SINGLE
     Route: 042
     Dates: start: 20191019, end: 20191019
  113. MIDODRINE [Concomitant]
     Active Substance: MIDODRINE
     Dosage: 20 MG, TIW
     Route: 048
     Dates: start: 20191021, end: 20191021
  114. DIMETHICONE. [Concomitant]
     Active Substance: DIMETHICONE
     Dosage: 80 MG, QID
     Route: 048
     Dates: start: 20191021, end: 20191031
  115. TRANSAMIN [Concomitant]
     Active Substance: TRANEXAMIC ACID
     Indication: GASTRIC HAEMORRHAGE
     Dosage: 125 MG, BID
     Route: 042
     Dates: start: 20191108, end: 20191108
  116. TRANSAMIN [Concomitant]
     Active Substance: TRANEXAMIC ACID
     Dosage: 250 MG, BID
     Route: 048
     Dates: start: 20191128, end: 20191129
  117. DARBEPOETIN ALFA [Concomitant]
     Active Substance: DARBEPOETIN ALFA
     Indication: END STAGE RENAL DISEASE
     Dosage: 20 ?G, QW
     Route: 058
     Dates: start: 20191115, end: 20191129
  118. BENIDIPINE [Concomitant]
     Active Substance: BENIDIPINE
     Dosage: 4 MG, BID
     Route: 048
     Dates: start: 20191113, end: 20191211
  119. LABETALOL [Concomitant]
     Active Substance: LABETALOL\LABETALOL HYDROCHLORIDE
     Indication: HYPERTENSION
     Dosage: 200 MG, SINGLE
     Route: 048
     Dates: start: 20191023, end: 20191023
  120. MECOBALAMIN [Concomitant]
     Active Substance: METHYLCOBALAMIN
     Dosage: 500 ?G, UNK
     Route: 065
     Dates: start: 20191109, end: 20191123
  121. ULTRACET [Concomitant]
     Active Substance: ACETAMINOPHEN\TRAMADOL HYDROCHLORIDE
     Dosage: 1 UNK, BID
     Route: 048
     Dates: start: 20191022, end: 20191029
  122. NYSTATIN. [Concomitant]
     Active Substance: NYSTATIN
     Indication: PROPHYLAXIS
     Dosage: 500000 UT, TID
     Route: 048
     Dates: start: 20191024, end: 20191031
  123. TRAMADOL HCL [Concomitant]
     Active Substance: TRAMADOL HYDROCHLORIDE
     Indication: CHOLECYSTITIS
     Dosage: 50 MG, SINGLE
     Route: 042
     Dates: start: 20191023, end: 20191023
  124. COMBIVENT [Concomitant]
     Active Substance: ALBUTEROL SULFATE\IPRATROPIUM BROMIDE
     Indication: PNEUMONIA
     Dosage: 2.5 ML, QID
     Route: 055
     Dates: start: 20191021, end: 20191029
  125. CLOPIDOGREL [Concomitant]
     Active Substance: CLOPIDOGREL BISULFATE
     Dosage: 75 MG, QD
     Route: 048
     Dates: start: 20191105, end: 20191119
  126. ISOSORBIDE MONONITRATE. [Concomitant]
     Active Substance: ISOSORBIDE MONONITRATE
     Dosage: 60 UNK, UNK
     Route: 048
     Dates: start: 20191108, end: 20191110
  127. HYDRALAZINE [Concomitant]
     Active Substance: HYDRALAZINE HYDROCHLORIDE
     Dosage: 25 MG, QID
     Route: 048
     Dates: start: 20191120, end: 20191124
  128. HYDRALAZINE [Concomitant]
     Active Substance: HYDRALAZINE HYDROCHLORIDE
     Dosage: 50 MG, QID
     Route: 048
     Dates: start: 20191125, end: 20191211
  129. DOXAZOSIN [Concomitant]
     Active Substance: DOXAZOSIN MESYLATE
     Dosage: 2 MG, QD
     Route: 048
     Dates: start: 20191107
  130. CEVIMELINE. [Concomitant]
     Active Substance: CEVIMELINE
     Dosage: 30 MG, QD
     Route: 048
     Dates: start: 20191109, end: 20191123
  131. DESMOPRESSIN ACETATE. [Concomitant]
     Active Substance: DESMOPRESSIN ACETATE
     Dosage: 16 ?G, UNK
     Route: 042
     Dates: start: 20191108, end: 20191108
  132. ACETYLCYSTEINE. [Concomitant]
     Active Substance: ACETYLCYSTEINE
     Dosage: 600 MG, BID
     Route: 065
     Dates: start: 20191109, end: 20191123
  133. VANCOMYCIN [Concomitant]
     Active Substance: VANCOMYCIN
     Dosage: 1000 MG, SINGLE
     Route: 042
     Dates: start: 20191109, end: 20191109
  134. CIMETIDINE [Concomitant]
     Active Substance: CIMETIDINE
     Indication: GASTRIC ULCER
     Dosage: 300 MG, SINGLE
     Route: 048
     Dates: start: 20191019, end: 20191019
  135. CEFUROXIME. [Concomitant]
     Active Substance: CEFUROXIME
     Indication: PNEUMONIA
     Dosage: 1500 MG, QD
     Route: 042
     Dates: start: 20191025, end: 20191031
  136. NIFEDIPINE. [Concomitant]
     Active Substance: NIFEDIPINE
     Indication: HYPERTENSION
     Dosage: 30 MG, SINGLE
     Route: 048
     Dates: start: 20191107, end: 20191107
  137. MIDAZOLAM HYDROCHLORIDE. [Concomitant]
     Active Substance: MIDAZOLAM HYDROCHLORIDE
     Indication: ENDOTRACHEAL INTUBATION
     Dosage: 10 MG, SINGLE
     Route: 042
     Dates: start: 20191108, end: 20191108
  138. TRANSAMIN [Concomitant]
     Active Substance: TRANEXAMIC ACID
     Dosage: 250 MG, BID
     Route: 042
     Dates: start: 20191111
  139. BENIDIPINE [Concomitant]
     Active Substance: BENIDIPINE
     Dosage: 4 MG, Q12H
     Route: 065
     Dates: start: 20191109, end: 20191123
  140. CALCIUM ACETATE. [Concomitant]
     Active Substance: CALCIUM ACETATE
     Indication: END STAGE RENAL DISEASE
     Dosage: 2001 MG, TID
     Route: 048
     Dates: start: 20191022, end: 20191028
  141. FEBUXOSTAT. [Concomitant]
     Active Substance: FEBUXOSTAT
     Dosage: 40 MG, QD
     Route: 048
     Dates: start: 20191107, end: 20191107
  142. SENNOSIDE                          /00571901/ [Concomitant]
     Active Substance: SENNOSIDES A AND B
     Indication: PROPHYLAXIS
     Dosage: 40 MG, QD
     Route: 048
     Dates: start: 20191030, end: 20191031
  143. TRIAMCINOLONE [Concomitant]
     Active Substance: TRIAMCINOLONE
     Indication: SJOGREN^S SYNDROME
     Dosage: 1 G, BID
     Route: 061
     Dates: start: 20191023, end: 20191108
  144. ATORVASTATIN [Concomitant]
     Active Substance: ATORVASTATIN
     Indication: MYOCARDIAL ISCHAEMIA
     Dosage: 10 MG, QD
     Route: 048
     Dates: start: 20190709
  145. CALCIUM POLYSTYRENE SULFONATE [Concomitant]
     Active Substance: CALCIUM POLYSTYRENE SULFONATE
     Dosage: 5 G, QID
     Route: 048
     Dates: start: 20191125, end: 20191125
  146. CALCIUM POLYSTYRENE SULFONATE [Concomitant]
     Active Substance: CALCIUM POLYSTYRENE SULFONATE
     Dosage: 5 G, QD
     Route: 048
     Dates: start: 20191203, end: 20191211
  147. HEPARINOID [Concomitant]
     Active Substance: CHONDROITIN SULFATE (BOVINE)
     Indication: PROPHYLAXIS
     Dosage: 1 G, BID
     Route: 061
     Dates: start: 20190903
  148. DOXAZOSIN [Concomitant]
     Active Substance: DOXAZOSIN MESYLATE
     Dosage: 2 MG, QD
     Route: 048
     Dates: start: 20191015, end: 20191028
  149. CEVIMELINE. [Concomitant]
     Active Substance: CEVIMELINE
     Indication: SJOGREN^S SYNDROME
     Dosage: 30 MG, QD
     Route: 048
     Dates: start: 20190924
  150. GLUCOSAMINE [Concomitant]
     Active Substance: GLUCOSAMINE
     Indication: ARTHRALGIA
     Dosage: 250 MG, BID
     Route: 048
     Dates: start: 20191015, end: 20191105
  151. ACETYLCYSTEINE. [Concomitant]
     Active Substance: ACETYLCYSTEINE
     Indication: COUGH
     Dosage: 600 MG, QD
     Route: 048
     Dates: start: 20190924, end: 20191015
  152. BERODUAL [Concomitant]
     Active Substance: FENOTEROL HYDROBROMIDE\IPRATROPIUM BROMIDE
     Indication: COUGH
     Dosage: 1 UNK, TID
     Route: 055
     Dates: start: 20190924, end: 20191119
  153. ACETAMINOPHEN. [Concomitant]
     Active Substance: ACETAMINOPHEN
     Indication: HEADACHE
     Dosage: 500 MG, Q6H
     Route: 048
     Dates: start: 20190924, end: 20191105
  154. ACETAMINOPHEN. [Concomitant]
     Active Substance: ACETAMINOPHEN
     Dosage: 500 UNK, UNK
     Route: 048
     Dates: start: 20191109, end: 20191123
  155. ACETAMINOPHEN. [Concomitant]
     Active Substance: ACETAMINOPHEN
     Dosage: 500 MG, Q6H (PRN)
     Route: 048
     Dates: start: 20191122, end: 20191204
  156. CODEINE PHOSPHATE [Concomitant]
     Active Substance: CODEINE PHOSPHATE
     Indication: DERMATITIS BULLOUS
     Dosage: 60 MG, Q6H (PRN)
     Route: 048
     Dates: start: 20191015, end: 20191018
  157. CODEINE PHOSPHATE [Concomitant]
     Active Substance: CODEINE PHOSPHATE
     Indication: PNEUMONIA
     Dosage: 30 MG, SINGLE
     Route: 048
     Dates: start: 20191022, end: 20191022

REACTIONS (2)
  - Dermatitis bullous [Recovered/Resolved]
  - Pneumonia [Recovered/Resolved]

NARRATIVE: CASE EVENT DATE: 20191108
